FAERS Safety Report 5417725-1 (Version None)
Quarter: 2007Q3

REPORT INFORMATION
  Report Type: 
  Country: None (occurrence: None)
  Receive Date: 20070815
  Receipt Date: 20070815
  Transmission Date: 20080115
  Serious: Yes (Hospitalization)
  Sender: FDA-Public Use
  Company Number: None

PATIENT
  Sex: Male
  Weight: 97.0698 kg

DRUGS (11)
  1. COUMADIN [Suspect]
     Indication: ATRIAL FIBRILLATION
     Dosage: 5MG PO QD (THERAPY DATES: PRIOR TO ADMISSION)
     Route: 048
  2. VYTORIN [Concomitant]
  3. FLOMAX [Concomitant]
  4. GLIPIZIDE [Concomitant]
  5. ALTACE [Concomitant]
  6. ISOSORBIDE DINITRATE [Concomitant]
  7. AVANDIA [Concomitant]
  8. TOPROL-XL [Concomitant]
  9. LASIX [Concomitant]
  10. LEVOTHYROXINE SODIUM [Concomitant]
  11. STOOL SOFTENER [Concomitant]

REACTIONS (7)
  - ABDOMINAL DISTENSION [None]
  - AORTIC ANEURYSM [None]
  - ATRIAL FIBRILLATION [None]
  - DRUG TOXICITY [None]
  - ECCHYMOSIS [None]
  - FAECES DISCOLOURED [None]
  - MUSCLE HAEMORRHAGE [None]
